FAERS Safety Report 5448281-X (Version None)
Quarter: 2007Q3

REPORT INFORMATION
  Report Type: 
  Country: None (occurrence: None)
  Receive Date: 20070911
  Receipt Date: 20070905
  Transmission Date: 20080115
  Serious: Yes (Other)
  Sender: FDA-Public Use
  Company Number: PHBS2007ZA14560

PATIENT
  Age: 54 Year
  Sex: Male

DRUGS (1)
  1. DICLOFENAC SODIUM [Suspect]

REACTIONS (6)
  - BRONCHOSPASM [None]
  - DISSOCIATION [None]
  - ERYTHEMA [None]
  - PRURITUS [None]
  - SKIN DISCOMFORT [None]
  - SKIN REACTION [None]
